FAERS Safety Report 4622320-8 (Version None)
Quarter: 2005Q1

REPORT INFORMATION
  Report Type: 
  Country: None (occurrence: None)
  Receive Date: 20050330
  Receipt Date: 20050318
  Transmission Date: 20050727
  Serious: Yes (Other)
  Sender: FDA-Public Use
  Company Number: US-BRISTOL-MYERS SQUIBB COMPANY-12902219

PATIENT
  Age: 3 Decade
  Sex: Female

DRUGS (3)
  1. KENALOG [Suspect]
  2. AVELOX [Suspect]
     Route: 048
     Dates: start: 20050309
  3. ROCEPHIN [Suspect]
     Dates: start: 20050308

REACTIONS (4)
  - DYSPNOEA [None]
  - PARAESTHESIA [None]
  - PRURITUS [None]
  - THROAT TIGHTNESS [None]
